FAERS Safety Report 4390606-0 (Version None)
Quarter: 2004Q2

REPORT INFORMATION
  Report Type: 
  Country: None (occurrence: None)
  Receive Date: 20040630
  Receipt Date: 20040614
  Transmission Date: 20050107
  Serious: Yes (Disabling, Other)
  Sender: FDA-Public Use
  Company Number: 200402465

PATIENT
  Age: 40 Year
  Sex: Male

DRUGS (1)
  1. BOTOX [Suspect]
     Indication: ANAL FISSURE
     Dosage: 20 UNITS PRN IM
     Route: 030

REACTIONS (3)
  - FAECAL INCONTINENCE [None]
  - FLATULENCE [None]
  - PARESIS ANAL SPHINCTER [None]
